FAERS Safety Report 8831628 (Version 2)
Quarter: 2012Q4

REPORT INFORMATION
  Report Type: Report from Study
  Country: GB (occurrence: GB)
  Receive Date: 20121009
  Receipt Date: 20121121
  Transmission Date: 20130627
  Serious: Yes (Hospitalization)
  Sender: FDA-Public Use
  Company Number: GB-GLAXOSMITHKLINE-B0833662A

PATIENT
  Age: 56 Year
  Sex: Male
  Weight: 78.3 kg

DRUGS (2)
  1. PAZOPANIB [Suspect]
     Indication: RENAL CELL CARCINOMA
     Route: 065
  2. RANITIDINE [Concomitant]
     Indication: ACHLORHYDRIA
     Dosage: 150MG Twice per day
     Route: 048

REACTIONS (2)
  - Drug intolerance [Recovered/Resolved]
  - Pyrexia [Recovered/Resolved]
